FAERS Safety Report 4639453-2 (Version None)
Quarter: 2005Q2

REPORT INFORMATION
  Report Type: 
  Country: None (occurrence: None)
  Receive Date: 20050418
  Receipt Date: 20050401
  Transmission Date: 20051028
  Serious: Yes (Life-Threatening, Hospitalization)
  Sender: FDA-Public Use
  Company Number: 106333ISR

PATIENT
  Age: 56 Year
  Sex: Female

DRUGS (5)
  1. FLUOROURACIL [Suspect]
     Indication: BREAST CANCER
     Dates: start: 20040908, end: 20040908
  2. FLUOROURACIL [Suspect]
     Indication: BREAST CANCER
     Dates: start: 20040915, end: 20040915
  3. EPIRUBICIN HYDROCHLORIDE [Suspect]
     Indication: BREAST CANCER
     Dosage: INTRAVENOUS (NOS)
     Route: 042
     Dates: start: 20040908, end: 20040908
  4. EPIRUBICIN HYDROCHLORIDE [Suspect]
     Indication: BREAST CANCER
     Dosage: INTRAVENOUS (NOS)
     Route: 042
     Dates: start: 20040915, end: 20040915
  5. CYCLOPHOSPHAMIDE [Suspect]
     Indication: BREAST CANCER
     Dosage: 100 MILLIGRAM; ORAL
     Route: 048
     Dates: start: 20040908

REACTIONS (7)
  - ACUTE RESPIRATORY DISTRESS SYNDROME [None]
  - AZOTAEMIA [None]
  - HEPATIC FAILURE [None]
  - PANCYTOPENIA [None]
  - PNEUMONIA [None]
  - PULMONARY EMBOLISM [None]
  - SEPSIS [None]
